FAERS Safety Report 9459618 (Version 1)
Quarter: 2013Q3

REPORT INFORMATION
  Report Type: Spontaneous
  Country: US (occurrence: US)
  Receive Date: 20130815
  Receipt Date: 20130815
  Transmission Date: 20140515
  Serious: No
  Sender: FDA-Public Use
  Company Number: US-COVIDIEN/TYCO HEALTHCARE/MALLINCKRODT-T201303605

PATIENT
  Sex: Female
  Weight: 47.62 kg

DRUGS (6)
  1. FENTANYL TRANSDERMAL SYSTEM [Suspect]
     Indication: PAIN
     Dosage: 100 UG/HR, Q48H
     Route: 062
     Dates: start: 201302
  2. FLECAINIDE [Concomitant]
     Indication: ARRHYTHMIA
     Dosage: 100 MG, PRN
     Route: 048
  3. DILTIAZEM [Concomitant]
     Indication: ARRHYTHMIA
     Dosage: 120 MG, PRN
     Route: 048
  4. MINOCYCLINE [Concomitant]
     Indication: ACNE
     Dosage: 100 MG, BID
     Route: 048
  5. LOSARTAN [Concomitant]
     Indication: CARDIAC DISORDER
     Dosage: 50 MG, QD
     Route: 048
  6. MIDODRINE [Concomitant]
     Indication: HYPOTENSION
     Dosage: 10 MG, QD OR BID
     Route: 048

REACTIONS (2)
  - Breakthrough pain [Not Recovered/Not Resolved]
  - Product adhesion issue [Not Recovered/Not Resolved]
